FAERS Safety Report 4765110-8 (Version None)
Quarter: 2005Q3

REPORT INFORMATION
  Report Type: 
  Country: None (occurrence: None)
  Receive Date: 20050906
  Receipt Date: 20050824
  Transmission Date: 20060218
  Serious: Yes (Other)
  Sender: FDA-Public Use
  Company Number: 200513375BCC

PATIENT
  Age: 73 Year
  Sex: Female
  Weight: 59.4212 kg

DRUGS (8)
  1. MILK OF MAGNESIA TAB [Suspect]
     Indication: CONSTIPATION
     Dosage: 10 ML, HS, ORAL
     Route: 048
     Dates: start: 20010101, end: 20050812
  2. MILK OF MAGNESIA TAB [Suspect]
     Indication: CONSTIPATION
     Dosage: 10 ML, HS, ORAL
     Route: 048
     Dates: start: 20050818
  3. NORVASC [Concomitant]
  4. ATENOLOL [Concomitant]
  5. NITROGLYCERIN [Concomitant]
  6. PHENOBARBITAL TAB [Concomitant]
  7. SYNTHROID [Concomitant]
  8. NEXIUM [Concomitant]

REACTIONS (6)
  - ANGINA PECTORIS [None]
  - BACK PAIN [None]
  - CONDITION AGGRAVATED [None]
  - GASTROOESOPHAGEAL REFLUX DISEASE [None]
  - HEART RATE INCREASED [None]
  - PALPITATIONS [None]
